FAERS Safety Report 7537490-1 (Version None)
Quarter: 2011Q2

REPORT INFORMATION
  Report Type: 
  Country: None (occurrence: None)
  Receive Date: 20110609
  Receipt Date: 20110531
  Transmission Date: 20111010
  Serious: Yes (Other)
  Sender: FDA-Public Use
  Company Number: US-JNJFOC-20110602571

PATIENT
  Sex: Female

DRUGS (3)
  1. BLOOD PRESSURE MEDICATION NOS [Interacting]
     Indication: BLOOD PRESSURE
  2. EXTRA STRENGTH TYLENOL [Suspect]
     Route: 048
  3. EXTRA STRENGTH TYLENOL [Suspect]
     Indication: PRODUCT USED FOR UNKNOWN INDICATION
     Route: 048

REACTIONS (4)
  - DRUG INTERACTION [None]
  - SYNCOPE [None]
  - DIZZINESS [None]
  - DRY MOUTH [None]
